FAERS Safety Report 16256315 (Version 1)
Quarter: 2019Q2

REPORT INFORMATION
  Report Type: Report from Study
  Country: FR (occurrence: FR)
  Receive Date: 20190430
  Receipt Date: 20190430
  Transmission Date: 20190711
  Serious: Yes (Other)
  Sender: FDA-Public Use
  Company Number: FR-JNJFOC-20190431831

PATIENT

DRUGS (2)
  1. STELARA [Suspect]
     Active Substance: USTEKINUMAB
     Indication: PSORIASIS
     Route: 058
  2. IXEKIZUMAB [Suspect]
     Active Substance: IXEKIZUMAB
     Indication: PSORIASIS
     Route: 065

REACTIONS (22)
  - Upper respiratory tract infection [Unknown]
  - Rhinitis [Unknown]
  - Injection site reaction [Recovered/Resolved]
  - Candida infection [Unknown]
  - Headache [Unknown]
  - Depression [Unknown]
  - Myocardial infarction [Unknown]
  - Back pain [Unknown]
  - Liver disorder [Unknown]
  - Nasopharyngitis [Unknown]
  - Diarrhoea [Unknown]
  - Hypersensitivity [Unknown]
  - Neutropenia [Unknown]
  - Drug ineffective [Unknown]
  - Arthralgia [Unknown]
  - Hypertension [Unknown]
  - Musculoskeletal pain [Unknown]
  - Cytopenia [Unknown]
  - Cough [Unknown]
  - Pruritus [Unknown]
  - Influenza [Unknown]
  - Bronchitis [Unknown]
